FAERS Safety Report 5227929-9 (Version None)
Quarter: 2007Q1

REPORT INFORMATION
  Report Type: 
  Country: None (occurrence: None)
  Receive Date: 20070202
  Receipt Date: 20070122
  Transmission Date: 20070707
  Serious: Yes (Hospitalization, Other)
  Sender: FDA-Public Use
  Company Number: US-PFIZER INC-2005049137

PATIENT
  Sex: Male
  Weight: 86.2 kg

DRUGS (5)
  1. BEXTRA [Suspect]
     Indication: ARTHRALGIA
     Route: 048
     Dates: start: 20040201, end: 20040401
  2. BEXTRA [Suspect]
     Indication: COSTOCHONDRITIS
  3. WELLBUTRIN XL [Concomitant]
     Indication: DEPRESSION
  4. CELEXA [Concomitant]
     Indication: DEPRESSION
  5. CYMBALTA [Concomitant]
     Indication: DEPRESSION

REACTIONS (3)
  - CEREBRAL INFARCTION [None]
  - DEPRESSION [None]
  - MONOPLEGIA [None]
